FAERS Safety Report 6577916-3 (Version None)
Quarter: 2010Q1

REPORT INFORMATION
  Report Type: 
  Country: None (occurrence: None)
  Receive Date: 20100211
  Receipt Date: 20100128
  Transmission Date: 20100710
  Serious: Yes (Hospitalization)
  Sender: FDA-Public Use
  Company Number: JP-PFIZER INC-2010017370

PATIENT
  Age: 78 Year
  Sex: Male
  Weight: 56.9 kg

DRUGS (4)
  1. SUNITINIB MALATE [Suspect]
     Indication: RENAL CANCER METASTATIC
     Dosage: 50 MG, 1X/DAY
     Route: 048
     Dates: start: 20090218, end: 20090227
  2. BLOPRESS [Concomitant]
     Dosage: UNK
     Route: 048
  3. CONIEL [Concomitant]
     Dosage: UNK
     Route: 048
  4. LOCHOL [Concomitant]
     Dosage: UNK
     Route: 048

REACTIONS (2)
  - OEDEMA [None]
  - PLEURAL EFFUSION [None]
